FAERS Safety Report 9017429 (Version 1)
Quarter: 2013Q1

REPORT INFORMATION
  Report Type: Spontaneous
  Country: US (occurrence: US)
  Receive Date: 20130117
  Receipt Date: 20130117
  Transmission Date: 20140127
  Serious: Yes (Other)
  Sender: FDA-Public Use
  Company Number: US-ASTRAZENECA-2012SE36442

PATIENT
  Age: 88 Year
  Sex: Female

DRUGS (1)
  1. NEXIUM [Suspect]
     Route: 048

REACTIONS (6)
  - Transient ischaemic attack [Unknown]
  - Bronchitis [Unknown]
  - Hypoacusis [Unknown]
  - Visual impairment [Unknown]
  - Intentional drug misuse [Unknown]
  - Drug dose omission [Unknown]
